FAERS Safety Report 6038432-0 (Version None)
Quarter: 2009Q1

REPORT INFORMATION
  Report Type: 
  Country: None (occurrence: None)
  Receive Date: 20090115
  Receipt Date: 20090112
  Transmission Date: 20090719
  Serious: Yes (Other)
  Sender: FDA-Public Use
  Company Number: US-AVENTIS-200910242US

PATIENT
  Sex: Female
  Weight: 54.5 kg

DRUGS (2)
  1. LOVENOX [Suspect]
     Dates: start: 20081111, end: 20090105
  2. FOLIC ACID [Concomitant]
     Dosage: DOSE: UNK

REACTIONS (2)
  - ABORTION SPONTANEOUS [None]
  - DRUG EXPOSURE DURING PREGNANCY [None]
